FAERS Safety Report 17073682 (Version 1)
Quarter: 2019Q4

REPORT INFORMATION
  Report Type: Spontaneous
  Country: GB (occurrence: GB)
  Receive Date: 20191126
  Receipt Date: 20191126
  Transmission Date: 20200122
  Serious: Yes (Other)
  Sender: FDA-Public Use
  Company Number: GB-SAMSUNG BIOEPIS-SB-2019-34374

PATIENT
  Age: 51 Year
  Sex: Male

DRUGS (1)
  1. IMRALDI [Suspect]
     Active Substance: ADALIMUMAB
     Indication: PSORIATIC ARTHROPATHY
     Route: 058

REACTIONS (5)
  - Psoriatic arthropathy [Unknown]
  - Injection site pain [Unknown]
  - Liver function test abnormal [Unknown]
  - Product substitution issue [Unknown]
  - Blood pressure fluctuation [Unknown]
